FAERS Safety Report 7661983-X (Version None)
Quarter: 2011Q3

REPORT INFORMATION
  Report Type: 
  Country: None (occurrence: None)
  Receive Date: 20110805
  Receipt Date: 20101130
  Transmission Date: 20111222
  Serious: No
  Sender: FDA-Public Use
  Company Number: US-ABBOTT-10P-163-0688671-00

PATIENT
  Sex: Female
  Weight: 71.278 kg

DRUGS (6)
  1. SYNTHROID [Concomitant]
     Indication: PRODUCT USED FOR UNKNOWN INDICATION
  2. XANAX [Concomitant]
     Indication: PRODUCT USED FOR UNKNOWN INDICATION
     Dosage: AT NIGHT
  3. ASPIRIN [Concomitant]
     Indication: PRODUCT USED FOR UNKNOWN INDICATION
     Dosage: IN THE PM
  4. NIASPAN [Suspect]
     Indication: BLOOD TRIGLYCERIDES
  5. NIASPAN [Suspect]
     Indication: HIGH DENSITY LIPOPROTEIN DECREASED
  6. NIASPAN [Suspect]
     Indication: LOW DENSITY LIPOPROTEIN INCREASED
     Dosage: 500MG AFTER DINNER
     Dates: start: 20101129

REACTIONS (5)
  - FEELING HOT [None]
  - HYPERAESTHESIA [None]
  - PARAESTHESIA [None]
  - PRURITUS [None]
  - EYELIDS PRURITUS [None]
